FAERS Safety Report 10483627 (Version 1)
Quarter: 2014Q3

REPORT INFORMATION
  Report Type: Spontaneous
  Country: BR (occurrence: BR)
  Receive Date: 20140930
  Receipt Date: 20140930
  Transmission Date: 20150326
  Serious: Yes (Other)
  Sender: FDA-Public Use
  Company Number: BR-JNJFOC-20140915357

PATIENT
  Sex: Female

DRUGS (1)
  1. INVEGA [Suspect]
     Active Substance: PALIPERIDONE
     Indication: NEUROSIS
     Dosage: 0.5 DOSAGES
     Route: 048

REACTIONS (11)
  - Apparent death [Unknown]
  - Palpitations [Unknown]
  - Hypoaesthesia [Unknown]
  - Off label use [Unknown]
  - Drug prescribing error [Unknown]
  - Erythema [Unknown]
  - Insomnia [Unknown]
  - Depression [Unknown]
  - Hypersensitivity [Unknown]
  - Oral discomfort [Unknown]
  - Mouth ulceration [Unknown]
